FAERS Safety Report 20049803 (Version 2)
Quarter: 2023Q2

REPORT INFORMATION
  Report Type: Report from Study
  Country: TH (occurrence: TH)
  Receive Date: 20211109
  Receipt Date: 20230419
  Transmission Date: 20230722
  Serious: Yes (Death, Other)
  Sender: FDA-Public Use
  Company Number: TH-JNJFOC-20211108339

PATIENT
  Age: 75 Year
  Sex: Male

DRUGS (3)
  1. BORTEZOMIB [Suspect]
     Active Substance: BORTEZOMIB
     Indication: Plasma cell myeloma
     Dosage: 1.6 MILLIGRAM, 1/WEEK
     Route: 058
     Dates: start: 20210927, end: 20211005
  2. DARATUMUMAB [Suspect]
     Active Substance: DARATUMUMAB
     Indication: Plasma cell myeloma
     Dosage: 600 MILLIGRAM, 1/WEEK
     Route: 041
     Dates: start: 20210927, end: 20211005
  3. DARATUMUMAB [Suspect]
     Active Substance: DARATUMUMAB
     Dosage: 600 MILLIGRAM, 1/WEEK
     Route: 041
     Dates: start: 20210927, end: 20211005

REACTIONS (1)
  - Plasma cell myeloma [Fatal]
